FAERS Safety Report 4394247-0 (Version None)
Quarter: 2004Q3

REPORT INFORMATION
  Report Type: 
  Country: None (occurrence: None)
  Receive Date: 20040707
  Receipt Date: 20040707
  Transmission Date: 20050211
  Serious: Yes (Death)
  Sender: FDA-Public Use
  Company Number: None

PATIENT
  Age: 80 Year
  Sex: Female
  Weight: 69.8 kg

DRUGS (10)
  1. IRINOTECAN - CPT11 - PHARMACIA/PFIZER [Suspect]
     Indication: RECTAL CANCER
     Dosage: 100 MG/M2 D 1, 8 INTRAVENOUS
     Route: 042
     Dates: start: 20031006, end: 20031222
  2. IRINOTECAN - CPT11 - PHARMACIA/PFIZER [Suspect]
  3. XELODA [Suspect]
     Indication: RECTAL CANCER
     Dosage: 1500 MG/M2 D 1 - 14 ORAL
     Route: 048
     Dates: start: 20031006, end: 20031229
  4. XELODA [Suspect]
  5. FRAGMIN [Concomitant]
  6. PYRIDOXINE [Concomitant]
  7. CELEBREX [Concomitant]
  8. NORVASC [Concomitant]
  9. MYLANTA [Concomitant]
  10. TYLENOL [Concomitant]

REACTIONS (9)
  - CLOSTRIDIAL INFECTION [None]
  - FATIGUE [None]
  - FREQUENT BOWEL MOVEMENTS [None]
  - INTERVERTEBRAL DISC PROTRUSION [None]
  - MALIGNANT NEOPLASM PROGRESSION [None]
  - PAIN [None]
  - RECTAL CANCER [None]
  - SPUTUM CULTURE POSITIVE [None]
  - STAPHYLOCOCCAL INFECTION [None]
